FAERS Safety Report 5705988-4 (Version None)
Quarter: 2008Q2

REPORT INFORMATION
  Report Type: 
  Country: None (occurrence: None)
  Receive Date: 20080415
  Receipt Date: 20080407
  Transmission Date: 20081010
  Serious: Yes (Hospitalization)
  Sender: FDA-Public Use
  Company Number: US-AVENTIS-200811263GDDC

PATIENT
  Age: 59 Year
  Sex: Female
  Weight: 126.1 kg

DRUGS (11)
  1. TAXOTERE [Suspect]
     Indication: BREAST CANCER
     Route: 042
     Dates: start: 20080117, end: 20080117
  2. PROCRIT [Suspect]
     Route: 058
     Dates: start: 20071206, end: 20080117
  3. PREDNISONE [Concomitant]
     Dates: start: 20080117, end: 20080201
  4. CYCLOPHOSPHAMIDE [Concomitant]
     Indication: BREAST CANCER
     Dates: start: 20071025
  5. DOXORUBICIN HCL [Concomitant]
     Indication: BREAST CANCER
     Dates: start: 20071025
  6. HYDROCHLOROTHIAZIDE [Concomitant]
     Route: 048
     Dates: start: 20070920
  7. CLARITIN [Concomitant]
     Route: 048
  8. VOLTAREN [Concomitant]
     Route: 048
     Dates: start: 20070920
  9. TAGAMET [Concomitant]
     Route: 048
  10. IRON [Concomitant]
     Route: 048
     Dates: start: 20071115
  11. PREVACID [Concomitant]
     Route: 048
     Dates: start: 20070920

REACTIONS (2)
  - CAPILLARY LEAK SYNDROME [None]
  - SUPRAVENTRICULAR TACHYCARDIA [None]
